FAERS Safety Report 10311027 (Version 1)
Quarter: 2014Q3

REPORT INFORMATION
  Report Type: Spontaneous
  Country: IT (occurrence: None)
  Receive Date: 20140715
  Receipt Date: 20140715
  Transmission Date: 20150326
  Serious: Yes (Life-Threatening)
  Sender: FDA-Public Use
  Company Number: AUR-APL-2014-07366

PATIENT
  Age: 79 Year
  Sex: Female

DRUGS (10)
  1. METFORMIN (METFORMIN) UNKNOWN, UNKNOWN [Suspect]
     Active Substance: METFORMIN HYDROCHLORIDE
     Indication: TYPE 2 DIABETES MELLITUS
     Route: 048
     Dates: start: 20140101, end: 20140616
  2. LANTUS [Suspect]
     Active Substance: INSULIN GLARGINE
     Indication: TYPE 2 DIABETES MELLITUS
     Route: 058
     Dates: start: 20130101, end: 20140616
  3. UNIPRIL /00574902/ (ENALAPRIL MALEATE) TABLET [Concomitant]
  4. CRESTOR (ROSUVASTATIN CALCIUM) FILM-COATED TABLET [Concomitant]
  5. NORVASC (AMLODIPINE BESILATE) TABLET [Concomitant]
  6. LASIX /00032601/ (FUROSEMIDE) TABLET [Concomitant]
  7. APIDRA [Suspect]
     Active Substance: INSULIN GLULISINE
     Indication: TYPE 2 DIABETES MELLITUS
     Route: 058
     Dates: start: 20130101, end: 20140616
  8. PARIET (RABEPRAZOLE SODIUM) GASTRO-RESISTANT TABLET [Concomitant]
  9. SINTROM (ACENOCOUMAROL) TABLET [Concomitant]
  10. LANOXIN (DIGOXIN) TABLET [Concomitant]

REACTIONS (1)
  - Hypoglycaemic coma [None]

NARRATIVE: CASE EVENT DATE: 20140616
